FAERS Safety Report 5488057-0 (Version None)
Quarter: 2007Q4

REPORT INFORMATION
  Report Type: 
  Country: None (occurrence: None)
  Receive Date: 20071017
  Receipt Date: 20071010
  Transmission Date: 20080405
  Serious: Yes (Other)
  Sender: FDA-Public Use
  Company Number: US-ASTRAZENECA-2007UW21542

PATIENT
  Age: 68 Year
  Sex: Female
  Weight: 61.7 kg

DRUGS (5)
  1. ARIMIDEX [Suspect]
     Indication: BREAST CANCER
     Route: 048
     Dates: start: 20070413
  2. ATENOLOL [Concomitant]
     Indication: HYPERTENSION
     Route: 048
  3. LORATADINE [Concomitant]
     Indication: HYPERSENSITIVITY
  4. FLUTICASONE SPRAY [Concomitant]
     Indication: HYPERSENSITIVITY
  5. VITAMINS [Concomitant]

REACTIONS (2)
  - RASH [None]
  - VASCULITIS [None]
